FAERS Safety Report 6448301-X (Version None)
Quarter: 2009Q4

REPORT INFORMATION
  Report Type: 
  Country: None (occurrence: None)
  Receive Date: 20091120
  Receipt Date: 20091111
  Transmission Date: 20100525
  Serious: Yes (Other)
  Sender: FDA-Public Use
  Company Number: PHHY2009JP30501

PATIENT
  Sex: Male
  Weight: 56 kg

DRUGS (12)
  1. ICL670A ICL+DISTAB [Suspect]
     Indication: MYELODYSPLASTIC SYNDROME
     Dosage: 500 MG DAILY
     Route: 048
     Dates: start: 20081008
  2. ICL670A ICL+DISTAB [Suspect]
     Indication: IRON OVERLOAD
     Dosage: 1000 MG DAILY
     Route: 048
     Dates: start: 20090415
  3. RED BLOOD CELLS [Concomitant]
     Dosage: 4 U, QMO
     Dates: start: 20081008
  4. NOVORAPID [Concomitant]
     Dosage: 28 DF, UNK
     Dates: start: 20081008
  5. PREDONINE [Concomitant]
     Dosage: 10 MG, UNK
     Route: 048
  6. AMLODIPINE [Concomitant]
     Dosage: 5 MG, UNK
     Route: 048
     Dates: start: 20081008
  7. LUPRAC [Concomitant]
     Dosage: 4 MG, UNK
     Route: 048
  8. GASTER D [Concomitant]
     Indication: PROPHYLAXIS
     Dosage: 20 MG, UNK
     Route: 048
     Dates: start: 20081008
  9. ADONA [Concomitant]
     Indication: MYELODYSPLASTIC SYNDROME
     Dosage: 90 MG, UNK
     Route: 048
     Dates: start: 20081008
  10. GLAKAY [Concomitant]
     Indication: MYELODYSPLASTIC SYNDROME
     Dosage: 45 MG, UNK
     Route: 048
     Dates: start: 20081008
  11. TRANSAMIN [Concomitant]
     Indication: MYELODYSPLASTIC SYNDROME
     Dosage: 750 MG, UNK
     Route: 048
     Dates: start: 20081008
  12. ASCORBIC ACID [Concomitant]
     Indication: MYELODYSPLASTIC SYNDROME
     Dosage: 1000 MG, UNK
     Route: 048
     Dates: start: 20081008

REACTIONS (8)
  - ALANINE AMINOTRANSFERASE INCREASED [None]
  - ASPARTATE AMINOTRANSFERASE INCREASED [None]
  - BILE DUCT CANCER [None]
  - BLOOD ALKALINE PHOSPHATASE INCREASED [None]
  - BLOOD BILIRUBIN INCREASED [None]
  - BLOOD LACTATE DEHYDROGENASE INCREASED [None]
  - DRUG EFFECT DECREASED [None]
  - GAMMA-GLUTAMYLTRANSFERASE INCREASED [None]
